FAERS Safety Report 17711905 (Version 1)
Quarter: 2020Q2

REPORT INFORMATION
  Report Type: Spontaneous
  Country: US (occurrence: US)
  Receive Date: 20200426
  Receipt Date: 20200426
  Transmission Date: 20200714
  Serious: Yes (Other)
  Sender: FDA-Public Use
  Company Number: None

PATIENT
  Age: 77 Year
  Sex: Female
  Weight: 44.55 kg

DRUGS (12)
  1. BACLOFEN. [Concomitant]
     Active Substance: BACLOFEN
  2. PROGESTERONE. [Concomitant]
     Active Substance: PROGESTERONE
  3. WOMEN^S GUMMY MULTI VITAMINS [Concomitant]
  4. B12 METHYL COBALAMIN FORM [Concomitant]
  5. FISH OIL [Concomitant]
     Active Substance: FISH OIL
  6. VITAMIN C [Concomitant]
     Active Substance: ASCORBIC ACID
  7. CBD OIL [Concomitant]
     Active Substance: CANNABIDIOL\HERBALS
  8. XIIDRA [Suspect]
     Active Substance: LIFITEGRAST
     Indication: DRY EYE
     Dosage: ?          QUANTITY:60 SINGLE USE CONTAIN;?
     Route: 047
  9. COQ10 [Concomitant]
     Active Substance: UBIDECARENONE
  10. VITAMIN E [Concomitant]
     Active Substance: .ALPHA.-TOCOPHEROL
  11. LIDOCAINE. [Concomitant]
     Active Substance: LIDOCAINE
  12. VITAMIN D3 [Concomitant]
     Active Substance: CHOLECALCIFEROL

REACTIONS (5)
  - Oral candidiasis [None]
  - Vision blurred [None]
  - Oral pain [None]
  - Hordeolum [None]
  - Eye pain [None]

NARRATIVE: CASE EVENT DATE: 20200311
